FAERS Safety Report 23678054 (Version 1)
Quarter: 2024Q1

REPORT INFORMATION
  Report Type: Spontaneous
  Country: US (occurrence: US)
  Receive Date: 20240327
  Receipt Date: 20240327
  Transmission Date: 20240410
  Serious: Yes (Other)
  Sender: FDA-Public Use
  Company Number: US-MYLANLABS-2024M1026846

PATIENT
  Age: 5 Decade
  Sex: Male

DRUGS (13)
  1. DOCETAXEL [Suspect]
     Active Substance: DOCETAXEL\DOCETAXEL ANHYDROUS
     Indication: Hormone-refractory prostate cancer
     Dosage: UNK
     Route: 065
  2. DOCETAXEL [Suspect]
     Active Substance: DOCETAXEL\DOCETAXEL ANHYDROUS
     Indication: Prostate cancer metastatic
  3. CABAZITAXEL [Suspect]
     Active Substance: CABAZITAXEL
     Indication: Hormone-refractory prostate cancer
     Dosage: UNK UNK, CYCLE
     Route: 065
  4. CABAZITAXEL [Suspect]
     Active Substance: CABAZITAXEL
     Indication: Prostate cancer metastatic
  5. LIRAMETOSTAT [Suspect]
     Active Substance: LIRAMETOSTAT
     Indication: Hormone-refractory prostate cancer
     Dosage: UNK,STARTED RECEIVING UNDER A TRIAL
     Route: 065
  6. LIRAMETOSTAT [Suspect]
     Active Substance: LIRAMETOSTAT
     Indication: Prostate cancer metastatic
  7. ENZALUTAMIDE [Suspect]
     Active Substance: ENZALUTAMIDE
     Indication: Hormone-refractory prostate cancer
     Dosage: UNK,STARTED RECEIVING UNDER A TRIAL
     Route: 065
  8. ENZALUTAMIDE [Suspect]
     Active Substance: ENZALUTAMIDE
     Indication: Prostate cancer metastatic
  9. TESTOSTERONE [Suspect]
     Active Substance: TESTOSTERONE
     Indication: Hormone-refractory prostate cancer
     Dosage: 400 MILLIGRAM, 28D CYCLE
     Route: 030
  10. TESTOSTERONE [Suspect]
     Active Substance: TESTOSTERONE
     Indication: Prostate cancer metastatic
  11. CARBOPLATIN [Concomitant]
     Active Substance: CARBOPLATIN
     Indication: Hormone-refractory prostate cancer
     Dosage: UNK
     Route: 065
  12. CARBOPLATIN [Concomitant]
     Active Substance: CARBOPLATIN
     Indication: Prostate cancer metastatic
  13. LEUPROLIDE [Concomitant]
     Active Substance: LEUPROLIDE
     Indication: Androgen therapy
     Dosage: UNK
     Route: 065

REACTIONS (2)
  - Drug ineffective [Unknown]
  - Disease progression [Unknown]
